FAERS Safety Report 21406377 (Version 1)
Quarter: 2022Q4

REPORT INFORMATION
  Report Type: Spontaneous
  Country: US (occurrence: US)
  Receive Date: 20221004
  Receipt Date: 20221004
  Transmission Date: 20230113
  Serious: Yes (Other)
  Sender: FDA-Public Use
  Company Number: US-UNITED THERAPEUTICS-UNT-2022-022298

PATIENT
  Age: 53 Year
  Sex: Female

DRUGS (4)
  1. REMODULIN [Suspect]
     Active Substance: TREPROSTINIL
     Indication: Pulmonary veno-occlusive disease
     Dosage: UNK, CONTINUING
     Route: 041
  2. REMODULIN [Suspect]
     Active Substance: TREPROSTINIL
     Dosage: 0.147 ?G/KG, CONTINUING
     Route: 041
  3. REMODULIN [Suspect]
     Active Substance: TREPROSTINIL
     Dosage: 0.141 ?G/KG, CONTINUING
     Route: 041
  4. TADALAFIL [Suspect]
     Active Substance: TADALAFIL
     Indication: Pulmonary veno-occlusive disease
     Dosage: 20 MG, BID
     Route: 048

REACTIONS (3)
  - Hypotension [Unknown]
  - Pulmonary veno-occlusive disease [Unknown]
  - Off label use [Unknown]
